FAERS Safety Report 8483991-1 (Version None)
Quarter: 2012Q3

REPORT INFORMATION
  Report Type: 
  Country: None (occurrence: None)
  Receive Date: 20120703
  Receipt Date: 20120628
  Transmission Date: 20120928
  Serious: No
  Sender: FDA-Public Use
  Company Number: US-PFIZER INC-2012140141

PATIENT
  Sex: Female

DRUGS (2)
  1. SUTENT [Suspect]
     Indication: RENAL CELL CARCINOMA
     Dosage: 50 MG, UNK
     Dates: start: 20110701
  2. SUTENT [Suspect]
     Indication: NEOPLASM
     Dosage: UNK
     Dates: start: 20110701

REACTIONS (6)
  - SKIN DISCOLOURATION [None]
  - WOUND [None]
  - SKIN ULCER [None]
  - DIARRHOEA [None]
  - ORAL PAIN [None]
  - PAIN IN EXTREMITY [None]
